FAERS Safety Report 10087189 (Version 2)
Quarter: 2014Q2

REPORT INFORMATION
  Report Type: Spontaneous
  Country: MX (occurrence: MX)
  Receive Date: 20140418
  Receipt Date: 20140504
  Transmission Date: 20141212
  Serious: Yes (Other)
  Sender: FDA-Public Use
  Company Number: MX-BRISTOL-MYERS SQUIBB COMPANY-20613048

PATIENT
  Age: 2 Year
  Sex: Male

DRUGS (1)
  1. HYDREA CAPS [Suspect]

REACTIONS (1)
  - Accidental exposure to product by child [Unknown]
